FAERS Safety Report 5195935-9 (Version None)
Quarter: 2006Q4

REPORT INFORMATION
  Report Type: 
  Country: None (occurrence: None)
  Receive Date: 20061227
  Receipt Date: 20061227
  Transmission Date: 20070319
  Serious: Yes (Life-Threatening, Hospitalization, Disabling)
  Sender: FDA-Public Use
  Company Number: None

PATIENT
  Age: 65 Year
  Sex: Female

DRUGS (1)
  1. LIPITOR [Suspect]
     Indication: CARDIOMYOPATHY
     Dosage: 10 MG DAILY PO
     Route: 048
     Dates: start: 20061120, end: 20061208

REACTIONS (1)
  - MENTAL STATUS CHANGES [None]
